FAERS Safety Report 5620549-3 (Version None)
Quarter: 2008Q1

REPORT INFORMATION
  Report Type: 
  Country: None (occurrence: None)
  Receive Date: 20080208
  Receipt Date: 20080201
  Transmission Date: 20080703
  Serious: Yes (Hospitalization)
  Sender: FDA-Public Use
  Company Number: IT-GENENTECH-243965

PATIENT
  Sex: Female

DRUGS (2)
  1. BEVACIZUMAB [Suspect]
     Indication: BREAST CANCER
     Dosage: 825 MG, QD
     Route: 042
     Dates: start: 20070613
  2. IXABEPILONE [Suspect]
     Indication: BREAST CANCER
     Dosage: 56 MG, QD
     Route: 042
     Dates: start: 20070613

REACTIONS (4)
  - DYSPHONIA [None]
  - LEUKOPENIA [None]
  - NEUTROPENIA [None]
  - THROMBOCYTOPENIA [None]
